FAERS Safety Report 7833018-7 (Version None)
Quarter: 2011Q4

REPORT INFORMATION
  Report Type: 
  Country: None (occurrence: None)
  Receive Date: 20111024
  Receipt Date: 20111010
  Transmission Date: 20120403
  Serious: No
  Sender: FDA-Public Use
  Company Number: US-ELI_LILLY_AND_COMPANY-US201108000977

PATIENT
  Age: 71 Year
  Sex: Female
  Weight: 54.422 kg

DRUGS (3)
  1. ZETIA [Concomitant]
     Dosage: 10 MG, QD
  2. SIMVASTATIN [Concomitant]
     Dosage: 20 MG, QD
  3. FORTEO [Suspect]
     Indication: OSTEOPOROSIS
     Dosage: 20 UG, QD
     Route: 058
     Dates: start: 20110301

REACTIONS (1)
  - NO ADVERSE EVENT [None]
